FAERS Safety Report 5994989-7 (Version None)
Quarter: 2008Q4

REPORT INFORMATION
  Report Type: 
  Country: None (occurrence: None)
  Receive Date: 20081212
  Receipt Date: 20080918
  Transmission Date: 20090506
  Serious: No
  Sender: FDA-Public Use
  Company Number: US-ABBOTT-08P-163-0477271-00

PATIENT
  Sex: Female
  Weight: 51.302 kg

DRUGS (6)
  1. HUMIRA [Suspect]
     Indication: PSORIATIC ARTHROPATHY
     Route: 050
     Dates: start: 20080401
  2. AZALEC [Concomitant]
     Indication: PARKINSON'S DISEASE
     Route: 048
     Dates: start: 20071201
  3. ROPINIROLE HYDROCHLORIDE [Concomitant]
     Indication: PARKINSON'S DISEASE
     Dosage: 12 MG DAILY
     Route: 048
     Dates: start: 20080301
  4. CITALOPRAM HYDROBROMIDE [Concomitant]
     Indication: PARKINSON'S DISEASE
     Dosage: 40 MG DAILY
     Route: 048
     Dates: start: 20070401
  5. CITALOPRAM HYDROBROMIDE [Concomitant]
     Indication: INSOMNIA
  6. METHYLPHENIDATE HCL [Concomitant]
     Indication: PARKINSON'S DISEASE
     Route: 048
     Dates: start: 20070901

REACTIONS (1)
  - INJECTION SITE IRRITATION [None]
